APPROVED DRUG PRODUCT: ACYCLOVIR SODIUM
Active Ingredient: ACYCLOVIR SODIUM
Strength: EQ 1GM BASE/VIAL
Dosage Form/Route: INJECTABLE;INJECTION
Application: A074969 | Product #002
Applicant: TEVA PARENTERAL MEDICINES INC
Approved: Aug 26, 1997 | RLD: No | RS: No | Type: DISCN